FAERS Safety Report 19472565 (Version 1)
Quarter: 2021Q2

REPORT INFORMATION
  Report Type: Spontaneous
  Country: US (occurrence: US)
  Receive Date: 20210624
  Receipt Date: 20210624
  Transmission Date: 20210717
  Serious: Yes (Other)
  Sender: FDA-Public Use
  Company Number: None

PATIENT

DRUGS (1)
  1. XTANDI [Suspect]
     Active Substance: ENZALUTAMIDE
     Dates: start: 20210220, end: 20210520

REACTIONS (9)
  - Epistaxis [None]
  - Swelling [None]
  - Adverse drug reaction [None]
  - Chest pain [None]
  - Bone pain [None]
  - Headache [None]
  - Fatigue [None]
  - Movement disorder [None]
  - Arthralgia [None]

NARRATIVE: CASE EVENT DATE: 20210520
